FAERS Safety Report 9244694 (Version 2)
Quarter: 2013Q3

REPORT INFORMATION
  Report Type: Spontaneous
  Country: FR (occurrence: FR)
  Receive Date: 20130422
  Receipt Date: 20130819
  Transmission Date: 20140515
  Serious: Yes (Other)
  Sender: FDA-Public Use
  Company Number: FR-JNJFOC-20130409406

PATIENT
  Age: 65 Year
  Sex: Female

DRUGS (4)
  1. XARELTO [Suspect]
     Indication: THROMBOSIS PROPHYLAXIS
     Route: 048
     Dates: start: 20130330, end: 20130407
  2. XARELTO [Suspect]
     Indication: HIP ARTHROPLASTY
     Route: 048
     Dates: start: 20130330, end: 20130407
  3. ATORVASTATIN [Suspect]
     Indication: PRODUCT USED FOR UNKNOWN INDICATION
     Route: 065
  4. LEVOTHYROX [Concomitant]
     Route: 065

REACTIONS (12)
  - Myalgia [Recovering/Resolving]
  - Asthenia [Recovering/Resolving]
  - Conjunctival haemorrhage [Recovering/Resolving]
  - Vertigo [Recovering/Resolving]
  - Hypotension [Recovering/Resolving]
  - Decreased appetite [Not Recovered/Not Resolved]
  - Urticaria [Recovering/Resolving]
  - Pyrexia [Recovering/Resolving]
  - Thrombocytosis [Recovering/Resolving]
  - Chills [Recovering/Resolving]
  - Headache [Recovering/Resolving]
  - Weight decreased [Not Recovered/Not Resolved]
